FAERS Safety Report 8461124-5 (Version None)
Quarter: 2012Q2

REPORT INFORMATION
  Report Type: 
  Country: None (occurrence: None)
  Receive Date: 20120625
  Receipt Date: 20120620
  Transmission Date: 20120825
  Serious: No
  Sender: FDA-Public Use
  Company Number: US-PFIZER INC-2012148961

PATIENT
  Sex: Female
  Weight: 75.283 kg

DRUGS (4)
  1. LIPITOR [Concomitant]
     Dosage: 40 MG, UNK
  2. LYRICA [Suspect]
     Indication: NEUROPATHY PERIPHERAL
     Dosage: 75 MG, 1X/DAY
     Route: 048
  3. DETROL [Concomitant]
     Dosage: UNK, 1X/DAY
  4. CELEBREX [Concomitant]
     Dosage: UNK

REACTIONS (1)
  - DIZZINESS [None]
